FAERS Safety Report 23280188 (Version 2)
Quarter: 2023Q4

REPORT INFORMATION
  Report Type: Spontaneous
  Country: JP (occurrence: JP)
  Receive Date: 20231210
  Receipt Date: 20231225
  Transmission Date: 20240110
  Serious: Yes (Other)
  Sender: FDA-Public Use
  Company Number: JP-002147023-NVSJ2023JP017357

PATIENT
  Sex: Male

DRUGS (1)
  1. AFINITOR [Suspect]
     Active Substance: EVEROLIMUS
     Indication: Pancreatic neuroendocrine tumour metastatic
     Dosage: UNK
     Route: 048

REACTIONS (9)
  - Pancreatic neuroendocrine tumour metastatic [Unknown]
  - Insulinoma [Unknown]
  - Blood insulin abnormal [Unknown]
  - Blood glucose decreased [Recovering/Resolving]
  - Fatigue [Unknown]
  - Malignant neoplasm progression [Unknown]
  - Altered state of consciousness [Unknown]
  - Ascites [Recovering/Resolving]
  - Drug ineffective [Unknown]
